FAERS Safety Report 5586695-8 (Version None)
Quarter: 2008Q1

REPORT INFORMATION
  Report Type: 
  Country: None (occurrence: None)
  Receive Date: 20080110
  Receipt Date: 20070928
  Transmission Date: 20080703
  Serious: No
  Sender: FDA-Public Use
  Company Number: US-BAYER-US-2007-036689

PATIENT
  Age: 39 Year
  Sex: Female
  Weight: 78 kg

DRUGS (2)
  1. YAZ [Suspect]
     Indication: CONTRACEPTION
     Route: 002
     Dates: start: 20070907
  2. IRON SUPPLEMENTS [Concomitant]

REACTIONS (2)
  - DRUG ADMINISTRATION ERROR [None]
  - METRORRHAGIA [None]
